FAERS Safety Report 4596157-2 (Version None)
Quarter: 2005Q1

REPORT INFORMATION
  Report Type: 
  Country: None (occurrence: None)
  Receive Date: 20050225
  Receipt Date: 20050216
  Transmission Date: 20050727
  Serious: Yes (Hospitalization, Other)
  Sender: FDA-Public Use
  Company Number: HQWYE461715JUN04

PATIENT
  Age: 69 Year
  Sex: Female
  Weight: 77.18 kg

DRUGS (1)
  1. ADVIL [Suspect]
     Indication: HEADACHE
     Dosage: 2 TABLETS AS NEEDED, ORAL
     Route: 048

REACTIONS (12)
  - ADHESION [None]
  - BACTERAEMIA [None]
  - CARDIAC FAILURE CONGESTIVE [None]
  - ENTEROCOCCAL BACTERAEMIA [None]
  - HAEMODIALYSIS [None]
  - NAUSEA [None]
  - PERITONITIS [None]
  - PROCEDURAL COMPLICATION [None]
  - SMALL INTESTINAL OBSTRUCTION [None]
  - SMALL INTESTINAL PERFORATION [None]
  - VOMITING [None]
  - WOUND DRAINAGE [None]
